FAERS Safety Report 10029310 (Version 1)
Quarter: 2014Q1

REPORT INFORMATION
  Report Type: Report from Study
  Country: US (occurrence: US)
  Receive Date: 20140321
  Receipt Date: 20140321
  Transmission Date: 20141002
  Serious: Yes (Other)
  Sender: FDA-Public Use
  Company Number: PHEH2014US005556

PATIENT
  Sex: Female
  Weight: 105.21 kg

DRUGS (1)
  1. GILENYA [Suspect]
     Indication: MULTIPLE SCLEROSIS
     Dosage: 0.5 MG, QD
     Route: 048
     Dates: start: 20120321

REACTIONS (13)
  - Schwannoma [Unknown]
  - Balance disorder [Unknown]
  - Neck pain [Unknown]
  - Muscle spasms [Unknown]
  - Muscular weakness [Unknown]
  - Musculoskeletal stiffness [Unknown]
  - Coordination abnormal [Unknown]
  - Back pain [Unknown]
  - Urinary tract infection [Unknown]
  - Urinary retention [Unknown]
  - Haematuria [Unknown]
  - Micturition urgency [Unknown]
  - Pollakiuria [Unknown]
